FAERS Safety Report 11874798 (Version 2)
Quarter: 2016Q3

REPORT INFORMATION
  Report Type: Report from Study
  Country: US (occurrence: US)
  Receive Date: 20151229
  Receipt Date: 20160725
  Transmission Date: 20161109
  Serious: Yes (Hospitalization)
  Sender: FDA-Public Use
  Company Number: PHEH2013US001762

PATIENT
  Sex: Female

DRUGS (6)
  1. TOBI [Suspect]
     Active Substance: TOBRAMYCIN
     Dosage: 300 MG, BID (TWICE DAILY EVERY OTHER MONTH)
     Route: 055
  2. TOBI [Suspect]
     Active Substance: TOBRAMYCIN
     Dosage: 300 MG, UNK
     Route: 055
  3. TOBI [Suspect]
     Active Substance: TOBRAMYCIN
     Dosage: UNK
     Route: 055
  4. TOBRAMYCIN. [Concomitant]
     Active Substance: TOBRAMYCIN
     Indication: PRODUCT USED FOR UNKNOWN INDICATION
     Dosage: UNK
     Route: 065
  5. TOBI [Suspect]
     Active Substance: TOBRAMYCIN
     Dosage: 300 MG, QD
     Route: 055
  6. TOBI [Suspect]
     Active Substance: TOBRAMYCIN
     Indication: PRODUCT USED FOR UNKNOWN INDICATION
     Dosage: 300 MG/5ML, BID, EVERY OTHER MONTH AS DIRECTED
     Route: 055

REACTIONS (7)
  - Fatigue [Unknown]
  - Respiratory tract congestion [Unknown]
  - Nausea [Unknown]
  - Malaise [Unknown]
  - Product use issue [Unknown]
  - Haemoptysis [Unknown]
  - Dyspnoea [Unknown]
